FAERS Safety Report 9270682 (Version 1)
Quarter: 2013Q2

REPORT INFORMATION
  Report Type: Spontaneous
  Country: US (occurrence: US)
  Receive Date: 20130503
  Receipt Date: 20130503
  Transmission Date: 20140414
  Serious: No
  Sender: FDA-Public Use
  Company Number: US-TEVA-401305USA

PATIENT
  Sex: Female
  Weight: 36.32 kg

DRUGS (6)
  1. ACTIQ [Suspect]
     Indication: CROHN^S DISEASE
     Route: 048
  2. CIMIVA [Concomitant]
     Indication: CROHN^S DISEASE
  3. METHOTREXATE [Concomitant]
     Indication: CROHN^S DISEASE
  4. MARINOL [Concomitant]
  5. NEXIUM [Concomitant]
     Indication: GASTRITIS
  6. CIPRO [Concomitant]
     Indication: CROHN^S DISEASE

REACTIONS (3)
  - Pain [Not Recovered/Not Resolved]
  - Eating disorder [Not Recovered/Not Resolved]
  - Depression [Not Recovered/Not Resolved]
